FAERS Safety Report 24878162 (Version 1)
Quarter: 2025Q1

REPORT INFORMATION
  Report Type: Spontaneous
  Country: FR (occurrence: FR)
  Receive Date: 20250123
  Receipt Date: 20250123
  Transmission Date: 20250409
  Serious: Yes (Hospitalization)
  Sender: CHEPLAPHARM
  Company Number: None

PATIENT
  Age: 0 Day
  Sex: Female
  Weight: 2.96 kg

DRUGS (6)
  1. OLANZAPINE [Suspect]
     Active Substance: OLANZAPINE
     Indication: Mixed anxiety and depressive disorder
     Dosage: 5 MG/D STARTED AT 37SA?DAILY DOSE: 5 MILLIGRAM
     Route: 064
     Dates: start: 2021, end: 20211203
  2. OXAZEPAM [Suspect]
     Active Substance: OXAZEPAM
     Indication: Mixed anxiety and depressive disorder
     Dosage: 40MG/D STARTED AT 32SA?DAILY DOSE: 40 MILLIGRAM
     Route: 064
     Dates: start: 2021, end: 20211203
  3. IMOVANE [Suspect]
     Active Substance: ZOPICLONE
     Indication: Mixed anxiety and depressive disorder
     Dosage: 7.5MG/D IF NEEDED STARTED AT 33SA?DAILY DOSE: 7.5 MILLIGRAM
     Route: 064
     Dates: start: 2021, end: 20211203
  4. SERTRALINE [Suspect]
     Active Substance: SERTRALINE HYDROCHLORIDE
     Indication: Mixed anxiety and depressive disorder
     Dosage: 25MG/D STARTED AT 37SA?DAILY DOSE: 25 MILLIGRAM
     Route: 064
     Dates: start: 2021, end: 20211203
  5. FOLIC ACID [Concomitant]
     Active Substance: FOLIC ACID
     Route: 064
  6. SPIRAMYCIN [Concomitant]
     Active Substance: SPIRAMYCIN
     Route: 064
     Dates: end: 20210914

REACTIONS (5)
  - Neonatal respiratory distress [Recovered/Resolved]
  - Hypotonia neonatal [Recovered/Resolved]
  - Neonatal aspiration [Recovered/Resolved]
  - Crying [Recovered/Resolved]
  - Foetal exposure during pregnancy [Recovered/Resolved]

NARRATIVE: CASE EVENT DATE: 20210101
